FAERS Safety Report 17589867 (Version 1)
Quarter: 2020Q1

REPORT INFORMATION
  Report Type: Spontaneous
  Country: US (occurrence: US)
  Receive Date: 20200327
  Receipt Date: 20200327
  Transmission Date: 20200409
  Serious: No
  Sender: FDA-Public Use
  Company Number: US-ALLERGAN-2004285US

PATIENT
  Sex: Female

DRUGS (2)
  1. OTHER UNSPECIFIED EYE DROPS [Concomitant]
     Indication: PRODUCT USED FOR UNKNOWN INDICATION
     Dosage: UNK
     Route: 047
  2. LUMIGAN [Suspect]
     Active Substance: BIMATOPROST
     Indication: INTRAOCULAR PRESSURE TEST ABNORMAL
     Dosage: 1 GTT, QHS
     Route: 047

REACTIONS (4)
  - Product container issue [Unknown]
  - Accidental exposure to product [Unknown]
  - Skin hyperpigmentation [Unknown]
  - Product dropper issue [Unknown]
